FAERS Safety Report 4470512-3 (Version None)
Quarter: 2004Q4

REPORT INFORMATION
  Report Type: 
  Country: None (occurrence: None)
  Receive Date: 20041005
  Receipt Date: 20040922
  Transmission Date: 20050328
  Serious: Yes (Other)
  Sender: FDA-Public Use
  Company Number: 2004069363

PATIENT
  Age: 22 Year
  Sex: Female
  Weight: 55.3388 kg

DRUGS (1)
  1. UNISOM [Suspect]
     Indication: NAUSEA
     Dosage: 1 TAB HS; ORAL
     Route: 048

REACTIONS (3)
  - DIZZINESS [None]
  - DRUG DEPENDENCE [None]
  - DRUG EXPOSURE DURING PREGNANCY [None]
